FAERS Safety Report 21962457 (Version 1)
Quarter: 2023Q1

REPORT INFORMATION
  Report Type: Spontaneous
  Country: BR (occurrence: None)
  Receive Date: 20230207
  Receipt Date: 20230207
  Transmission Date: 20230418
  Serious: Yes (Other)
  Sender: FDA-Public Use
  Company Number: BR-Merck Healthcare KGaA-9381368

PATIENT
  Sex: Female

DRUGS (9)
  1. LEVOTHYROXINE [Suspect]
     Active Substance: LEVOTHYROXINE
     Indication: Product used for unknown indication
  2. METFORMIN [Suspect]
     Active Substance: METFORMIN HYDROCHLORIDE
     Indication: Product used for unknown indication
  3. SIMVASTATIN [Suspect]
     Active Substance: SIMVASTATIN
     Indication: Product used for unknown indication
  4. METHYLDOPA [Concomitant]
     Active Substance: METHYLDOPA
     Indication: Product used for unknown indication
  5. AMLODIPINE [Concomitant]
     Active Substance: AMLODIPINE BESYLATE
     Indication: Product used for unknown indication
  6. HYDROCHLOROTHIAZIDE [Concomitant]
     Active Substance: HYDROCHLOROTHIAZIDE
     Indication: Product used for unknown indication
  7. LOSARTAN [Concomitant]
     Active Substance: LOSARTAN
     Indication: Product used for unknown indication
  8. PREGABALIN [Concomitant]
     Active Substance: PREGABALIN
     Indication: Product used for unknown indication
  9. DULOXETINE [Concomitant]
     Active Substance: DULOXETINE
     Indication: Product used for unknown indication

REACTIONS (14)
  - Hypothyroidism [Unknown]
  - Cerebrovascular accident [Not Recovered/Not Resolved]
  - Rheumatoid arthritis [Recovered/Resolved]
  - Blindness unilateral [Unknown]
  - Retinal detachment [Unknown]
  - Hypertension [Recovered/Resolved]
  - Fibromyalgia [Recovered/Resolved]
  - Depression [Unknown]
  - Uterine leiomyoma [Unknown]
  - Blood cholesterol abnormal [Unknown]
  - Glucose tolerance impaired [Unknown]
  - Sleep apnoea syndrome [Recovered/Resolved]
  - Panic disorder [Recovered/Resolved]
  - Varicose vein [Unknown]
